FAERS Safety Report 24638555 (Version 3)
Quarter: 2024Q4

REPORT INFORMATION
  Report Type: Report from Study
  Country: US (occurrence: US)
  Receive Date: 20241119
  Receipt Date: 20241211
  Transmission Date: 20250114
  Serious: Yes (Hospitalization)
  Sender: ABBVIE
  Company Number: US-ABBVIE-6005461

PATIENT
  Age: 64 Year
  Sex: Female

DRUGS (1)
  1. RINVOQ [Suspect]
     Active Substance: UPADACITINIB
     Indication: Rheumatoid arthritis
     Route: 048
     Dates: start: 20240925

REACTIONS (7)
  - Cardiac failure congestive [Recovering/Resolving]
  - Hypervolaemia [Not Recovered/Not Resolved]
  - Urinary tract infection [Recovered/Resolved]
  - Joint swelling [Recovering/Resolving]
  - Urinary tract infection [Recovering/Resolving]
  - Pain [Recovering/Resolving]
  - Wound dehiscence [Not Recovered/Not Resolved]

NARRATIVE: CASE EVENT DATE: 20240101
